FAERS Safety Report 5360691-8 (Version None)
Quarter: 2007Q2

REPORT INFORMATION
  Report Type: 
  Country: None (occurrence: None)
  Receive Date: 20070618
  Receipt Date: 20070608
  Transmission Date: 20071010
  Serious: Yes (Hospitalization)
  Sender: FDA-Public Use
  Company Number: JP-ROCHE-482197

PATIENT
  Age: 37 Year
  Sex: Male

DRUGS (22)
  1. DENOSINE IV [Suspect]
     Indication: CYTOMEGALOVIRUS ENTEROCOLITIS
     Dosage: FORM REPORTED AS I.V. INFUSION.
     Route: 041
     Dates: start: 20050311, end: 20050329
  2. DENOSINE IV [Suspect]
     Dosage: FORM REPORTED AS I.V. INFUSION.
     Route: 041
     Dates: start: 20050419, end: 20050424
  3. VALIXA [Suspect]
     Indication: CYTOMEGALOVIRUS ENTEROCOLITIS
     Route: 048
     Dates: start: 20050425, end: 20050517
  4. VALIXA [Suspect]
     Dosage: MAINTENANCE THRERAPY.
     Route: 048
     Dates: start: 20050518, end: 20050721
  5. BAKTAR [Suspect]
     Route: 048
     Dates: start: 20050312, end: 20050406
  6. EPIVIR [Suspect]
     Indication: HIV INFECTION
     Route: 048
     Dates: start: 20050329, end: 20050506
  7. EPIVIR [Suspect]
     Route: 048
     Dates: start: 20050610
  8. ZERIT [Suspect]
     Indication: HIV INFECTION
     Dosage: REPORTED AS ZERIT (SANILVUDINE).
     Route: 048
     Dates: start: 20050329, end: 20050506
  9. ZERIT [Suspect]
     Dosage: REPORTED AS ZERIT (SANILVUDINE).
     Route: 048
     Dates: start: 20050610, end: 20060323
  10. KALETRA [Suspect]
     Indication: HIV INFECTION
     Route: 048
     Dates: start: 20050329, end: 20050506
  11. KALETRA [Suspect]
     Route: 048
     Dates: start: 20050610
  12. LECTISOL [Suspect]
     Dosage: REPORTED AS LECTISOL (DIAPHENYLSULFONE).
     Route: 048
     Dates: start: 20050623, end: 20050628
  13. PENTAMIDINE ISETHIONATE [Concomitant]
     Dosage: REPORTED AS PENTAMIDINE ISETIONATE. ROUTE REPORTED AS RESPIRATORY (INHALATION).
     Route: 055
     Dates: start: 20050418, end: 20050518
  14. CORTRIL [Concomitant]
     Route: 048
     Dates: start: 20050503
  15. DIFLUCAN [Concomitant]
     Dosage: REPORTED AS DIFLUCAN (OTHER CHEMOTHERAPEUTICS). 200 MG ON 10 JUN 2005, 100 MG FROM 11 - 16 JUN 2005+
     Dates: start: 20050610, end: 20050622
  16. FUNGIZONE [Concomitant]
     Route: 048
     Dates: start: 20050621, end: 20051205
  17. ZITHROMAC [Concomitant]
     Route: 048
     Dates: start: 20050513, end: 20051205
  18. PYRIMETHAMINE TAB [Concomitant]
     Dosage: TDD STARTED AT 200 MG DAILY, REDUCED TO 75 MG ON 7 MAY 2005, TO 50 MG ON 25 JUN 2005 AND TO 25 MG O+
     Dates: start: 20050506
  19. CLINDAMYCIN HYDROCHLORIDE [Concomitant]
     Dosage: REDUCED FROM 2.4 TO 1.2 GRAM ON 24 MAY 2005.
     Route: 048
     Dates: start: 20050507
  20. CALCIUM FOLINATE [Concomitant]
     Dosage: INCREASED FROM 20 TO 50 MG ON 15 JUL 2005.
     Route: 048
     Dates: start: 20050506
  21. LENOGRASTIM [Concomitant]
     Indication: NEUTROPENIA
     Dosage: STOPPED ON 3 JUL 2007, RESTARTED ON 8 JUL 2005. TREATMENT ON 12 JUL 2005.
     Route: 042
     Dates: start: 20050630
  22. PREDNISOLONE [Concomitant]
     Route: 048
     Dates: start: 20050330

REACTIONS (4)
  - CEREBRAL TOXOPLASMOSIS [None]
  - HERPES ZOSTER [None]
  - NEUTROPENIA [None]
  - RASH [None]
